FAERS Safety Report 21243491 (Version 1)
Quarter: 2022Q3

REPORT INFORMATION
  Report Type: Report from Study
  Country: US (occurrence: US)
  Receive Date: 20220823
  Receipt Date: 20220823
  Transmission Date: 20221027
  Serious: Yes (Hospitalization, Other)
  Sender: FDA-Public Use
  Company Number: US-Accord-274281

PATIENT
  Age: 72 Year
  Weight: 95.30 kg

DRUGS (1)
  1. CLOZAPINE [Suspect]
     Active Substance: CLOZAPINE
     Indication: Schizoaffective disorder
     Dosage: 6.25MG, TWICE DAILY
     Route: 048

REACTIONS (2)
  - Catatonia [Unknown]
  - Seizure [Unknown]

NARRATIVE: CASE EVENT DATE: 20220621
